FAERS Safety Report 24321971 (Version 1)
Quarter: 2024Q3

REPORT INFORMATION
  Report Type: Spontaneous
  Country: AU (occurrence: AU)
  Receive Date: 20240916
  Receipt Date: 20240916
  Transmission Date: 20241017
  Serious: Yes (Other)
  Sender: BAUSCH AND LOMB
  Company Number: AU-BAUSCHBL-2024BNL032912

PATIENT
  Age: 38 Year
  Sex: Female

DRUGS (2)
  1. PREDNISOLONE [Suspect]
     Active Substance: PREDNISOLONE
     Indication: Product used for unknown indication
     Route: 065
  2. PLAQUENIL [Suspect]
     Active Substance: HYDROXYCHLOROQUINE SULFATE
     Indication: Product used for unknown indication
     Route: 065

REACTIONS (12)
  - Systemic lupus erythematosus [Unknown]
  - Asthenia [Unknown]
  - Bone pain [Unknown]
  - Brain fog [Unknown]
  - Cognitive disorder [Unknown]
  - Contusion [Unknown]
  - Dysarthria [Unknown]
  - Hypotonia [Unknown]
  - Muscular weakness [Unknown]
  - Petechiae [Unknown]
  - Rash [Unknown]
  - Vitamin B12 deficiency [Unknown]
